FAERS Safety Report 9125644 (Version 2)
Quarter: 2013Q1

REPORT INFORMATION
  Report Type: Spontaneous
  Country: CH (occurrence: CH)
  Receive Date: 20130121
  Receipt Date: 20130122
  Transmission Date: 20140127
  Serious: Yes (Death, Hospitalization)
  Sender: FDA-Public Use
  Company Number: CH-BAYER-2013-006299

PATIENT
  Age: 63 Year
  Sex: Male

DRUGS (4)
  1. NEXAVAR [Suspect]
     Indication: HEPATIC CANCER
     Dosage: 200 MG, BID
     Route: 048
     Dates: start: 20121120, end: 20121203
  2. NEXAVAR [Suspect]
     Indication: CHOLANGIOCARCINOMA
     Dosage: DAILY DOSE 800 MG
     Route: 048
     Dates: start: 20121203, end: 20121206
  3. AGOPTON [Concomitant]
     Dosage: 30 MG, UNK
     Route: 048
  4. KONAKION [Concomitant]
     Dosage: 10 MG, TIW
     Route: 048

REACTIONS (6)
  - Death [Fatal]
  - Acute hepatic failure [Fatal]
  - Hepatic encephalopathy [Fatal]
  - Hepatorenal syndrome [Fatal]
  - Haematemesis [Fatal]
  - Melaena [Fatal]
